FAERS Safety Report 5089624-9 (Version None)
Quarter: 2006Q3

REPORT INFORMATION
  Report Type: 
  Country: None (occurrence: None)
  Receive Date: 20060822
  Receipt Date: 20060803
  Transmission Date: 20061208
  Serious: Yes (Other)
  Sender: FDA-Public Use
  Company Number: US200608000977

PATIENT
  Sex: Female

DRUGS (3)
  1. CYMBALTA [Suspect]
     Indication: DEPRESSION
     Dosage: 60 MG
     Dates: start: 20040101, end: 20060101
  2. PROZAC [Suspect]
     Indication: DEPRESSION
     Dosage: 20 MG
  3. OTHER HORMONES [Concomitant]

REACTIONS (4)
  - GASTRIC BYPASS [None]
  - GASTROINTESTINAL PAIN [None]
  - HEADACHE [None]
  - PHARMACEUTICAL PRODUCT COMPLAINT [None]
